FAERS Safety Report 4631500-7 (Version None)
Quarter: 2005Q2

REPORT INFORMATION
  Report Type: 
  Country: None (occurrence: None)
  Receive Date: 20050407
  Receipt Date: 20050329
  Transmission Date: 20051028
  Serious: Yes (Hospitalization)
  Sender: FDA-Public Use
  Company Number: 2004AP06449

PATIENT
  Age: 59 Year
  Sex: Female
  Weight: 50.3 kg

DRUGS (4)
  1. ROSUVASTATIN CALCIUM [Suspect]
     Indication: HYPERLIPIDAEMIA
     Dosage: 5 MG DAILY PO
     Route: 048
     Dates: start: 20041020, end: 20041207
  2. URINORM [Concomitant]
  3. TENORMIN [Concomitant]
  4. CONIEL [Concomitant]

REACTIONS (12)
  - ANTINUCLEAR ANTIBODY POSITIVE [None]
  - AUTOIMMUNE HEPATITIS [None]
  - BLOOD AMYLASE INCREASED [None]
  - BLOOD PRESSURE INCREASED [None]
  - BLOOD URINE PRESENT [None]
  - CHOLELITHIASIS [None]
  - DIABETES MELLITUS [None]
  - GALLBLADDER OEDEMA [None]
  - HEPATIC NECROSIS [None]
  - LUDWIG ANGINA [None]
  - NASOPHARYNGITIS [None]
  - UROBILIN URINE [None]
